FAERS Safety Report 23635469 (Version 2)
Quarter: 2024Q2

REPORT INFORMATION
  Report Type: Report from Study
  Country: IL (occurrence: IL)
  Receive Date: 20240315
  Receipt Date: 20240415
  Transmission Date: 20240716
  Serious: Yes (Hospitalization)
  Sender: FDA-Public Use
  Company Number: IL-ABBVIE-5679858

PATIENT
  Sex: Female

DRUGS (2)
  1. CARBIDOPA\LEVODOPA [Suspect]
     Active Substance: CARBIDOPA\LEVODOPA
     Indication: Parkinson^s disease
     Route: 050
     Dates: start: 20201229
  2. CARBIDOPA\LEVODOPA [Suspect]
     Active Substance: CARBIDOPA\LEVODOPA
     Dosage: CONTINUOUS DOSAGE 1ML/H, EXTRA DOSAGE 1.8ML
     Route: 050

REACTIONS (6)
  - Head injury [Unknown]
  - Fall [Recovered/Resolved]
  - Haemorrhage [Unknown]
  - Skull fracture [Unknown]
  - Headache [Unknown]
  - Fear of falling [Unknown]

NARRATIVE: CASE EVENT DATE: 20240101
